FAERS Safety Report 13468873 (Version 1)
Quarter: 2017Q2

REPORT INFORMATION
  Report Type: Spontaneous
  Country: GB (occurrence: GB)
  Receive Date: 20170421
  Receipt Date: 20170421
  Transmission Date: 20170830
  Serious: Yes (Disabling)
  Sender: FDA-Public Use
  Company Number: GB-PFIZER INC-2017168158

PATIENT
  Sex: Male

DRUGS (1)
  1. METHYLPREDNISOLONE SODIUM SUCCINATE. [Suspect]
     Active Substance: METHYLPREDNISOLONE SODIUM SUCCINATE
     Indication: MULTIPLE SCLEROSIS
     Dosage: UNK
     Route: 042

REACTIONS (13)
  - Bloody discharge [Unknown]
  - Nerve injury [Not Recovered/Not Resolved]
  - Infection [Not Recovered/Not Resolved]
  - Tendon rupture [Not Recovered/Not Resolved]
  - Mouth haemorrhage [Unknown]
  - Tinnitus [Unknown]
  - Eustachian tube disorder [Unknown]
  - Pain [Unknown]
  - Tooth disorder [Unknown]
  - Tooth loss [Not Recovered/Not Resolved]
  - Balance disorder [Not Recovered/Not Resolved]
  - Condition aggravated [Not Recovered/Not Resolved]
  - Oral discharge [Unknown]
